FAERS Safety Report 7520497-8 (Version None)
Quarter: 2011Q2

REPORT INFORMATION
  Report Type: 
  Country: None (occurrence: None)
  Receive Date: 20110602
  Receipt Date: 20110524
  Transmission Date: 20111010
  Serious: Yes (Other)
  Sender: FDA-Public Use
  Company Number: JP-ELI_LILLY_AND_COMPANY-JP201104002106

PATIENT
  Age: 78 Year
  Sex: Female

DRUGS (4)
  1. FOLIC ACID [Concomitant]
  2. ALIMTA [Suspect]
     Indication: NON-SMALL CELL LUNG CANCER
     Dosage: UNK
     Route: 042
     Dates: start: 20110201
  3. AMLODIPINE [Concomitant]
  4. VITAMIN B-12 [Concomitant]

REACTIONS (1)
  - HEPATIC FUNCTION ABNORMAL [None]
